FAERS Safety Report 6725125-7 (Version None)
Quarter: 2010Q2

REPORT INFORMATION
  Report Type: 
  Country: None (occurrence: None)
  Receive Date: 20100514
  Receipt Date: 20100506
  Transmission Date: 20101027
  Serious: Yes (Disabling)
  Sender: FDA-Public Use
  Company Number: CA-ASTRAZENECA-2010SE20844

PATIENT
  Age: 70 Year
  Sex: Female
  Weight: 62.6 kg

DRUGS (7)
  1. ARIMIDEX [Suspect]
     Route: 048
  2. ALTACE [Concomitant]
     Route: 048
  3. ASAPHEN [Concomitant]
     Route: 048
  4. CALCIUM AND VITAMIN D [Concomitant]
     Route: 065
  5. MAGNESIUM [Concomitant]
     Route: 065
  6. NEXIUM [Concomitant]
     Route: 048
  7. SYNTHROID [Concomitant]
     Route: 048

REACTIONS (5)
  - ARTHRALGIA [None]
  - HOT FLUSH [None]
  - JOINT STIFFNESS [None]
  - MUSCULAR WEAKNESS [None]
  - WEIGHT INCREASED [None]
